FAERS Safety Report 24585867 (Version 1)
Quarter: 2024Q4

REPORT INFORMATION
  Report Type: Report from Study
  Country: ZA (occurrence: ZA)
  Receive Date: 20241106
  Receipt Date: 20241106
  Transmission Date: 20250114
  Serious: Yes (Hospitalization, Other)
  Sender: ALEXION PHARMACEUTICALS
  Company Number: ZA-AstraZeneca-CH-00726596A

PATIENT
  Age: 59 Year

DRUGS (20)
  1. DAPAGLIFLOZIN [Suspect]
     Active Substance: DAPAGLIFLOZIN
     Dosage: UNK
     Route: 065
  2. DAPAGLIFLOZIN [Suspect]
     Active Substance: DAPAGLIFLOZIN
     Dosage: UNK
  3. DAPAGLIFLOZIN [Suspect]
     Active Substance: DAPAGLIFLOZIN
     Dosage: UNK
     Route: 065
  4. DAPAGLIFLOZIN [Suspect]
     Active Substance: DAPAGLIFLOZIN
     Dosage: UNK
  5. LUMIGAN [Concomitant]
     Active Substance: BIMATOPROST
     Dosage: UNK
  6. LUMIGAN [Concomitant]
     Active Substance: BIMATOPROST
     Dosage: UNK
     Route: 065
  7. CLOTRIMAZOLE [Concomitant]
     Active Substance: CLOTRIMAZOLE
  8. CLOTRIMAZOLE [Concomitant]
     Active Substance: CLOTRIMAZOLE
     Route: 065
  9. STOPITCH [Concomitant]
  10. STOPITCH [Concomitant]
     Route: 065
  11. Linctopent [Concomitant]
  12. Linctopent [Concomitant]
     Route: 065
  13. LESSMUSEC [Concomitant]
  14. LESSMUSEC [Concomitant]
     Route: 065
  15. WARFARIN [Concomitant]
     Active Substance: WARFARIN
  16. WARFARIN [Concomitant]
     Active Substance: WARFARIN
     Route: 065
  17. FUROSEMIDE [Concomitant]
     Active Substance: FUROSEMIDE
  18. FUROSEMIDE [Concomitant]
     Active Substance: FUROSEMIDE
     Route: 065
  19. LACTOBACILLUS REUTERI [Concomitant]
     Active Substance: LACTOBACILLUS REUTERI
  20. LACTOBACILLUS REUTERI [Concomitant]
     Active Substance: LACTOBACILLUS REUTERI
     Route: 065

REACTIONS (2)
  - Cardiac failure [Unknown]
  - Hypoacusis [Unknown]
